FAERS Safety Report 10145785 (Version 1)
Quarter: 2014Q2

REPORT INFORMATION
  Report Type: Spontaneous
  Country: US (occurrence: US)
  Receive Date: 20140501
  Receipt Date: 20140501
  Transmission Date: 20141212
  Serious: No
  Sender: FDA-Public Use
  Company Number: US-ABBVIE-14P-163-1211718-00

PATIENT
  Sex: 0

DRUGS (5)
  1. CREON [Suspect]
     Indication: PRODUCT USED FOR UNKNOWN INDICATION
  2. OMEPRAZOLE [Concomitant]
     Indication: GASTRIC DISORDER
  3. OMEPRAZOLE [Concomitant]
     Indication: GASTRIC ULCER
  4. SUCRALFATE [Concomitant]
     Indication: GASTRIC DISORDER
  5. SUCRALFATE [Concomitant]
     Indication: GASTRIC ULCER

REACTIONS (2)
  - Gastric disorder [Unknown]
  - Gastric ulcer [Unknown]
